FAERS Safety Report 9539606 (Version 1)
Quarter: 2013Q3

REPORT INFORMATION
  Report Type: Spontaneous
  Country: GB (occurrence: None)
  Receive Date: 20130917
  Receipt Date: 20130917
  Transmission Date: 20140515
  Serious: Yes (Life-Threatening, Disabling, Other)
  Sender: FDA-Public Use
  Company Number: ABR_01119_2013

PATIENT
  Age: 84 Year
  Sex: Female

DRUGS (6)
  1. ERYTHROMYCIN [Suspect]
     Indication: LOWER RESPIRATORY TRACT INFECTION
     Route: 048
     Dates: start: 20111223, end: 201112
  2. WARFARIN [Suspect]
     Indication: ATRIAL FIBRILLATION
     Dates: start: 201111
  3. AMLODIPINE [Concomitant]
  4. ENALAPRIL [Concomitant]
  5. MOXONIDINE [Concomitant]
  6. QUININE SULPHATE [Concomitant]

REACTIONS (6)
  - Abdominal pain [None]
  - Cough [None]
  - Dyspnoea [None]
  - Vomiting [None]
  - International normalised ratio increased [None]
  - Abdominal wall haematoma [None]
